FAERS Safety Report 24157195 (Version 4)
Quarter: 2025Q1

REPORT INFORMATION
  Report Type: Spontaneous
  Country: US (occurrence: US)
  Receive Date: 20240731
  Receipt Date: 20250323
  Transmission Date: 20250408
  Serious: No
  Sender: SANOFI AVENTIS
  Company Number: US-SA-SAC20240729000145

PATIENT
  Sex: Male

DRUGS (19)
  1. DUPIXENT [Suspect]
     Active Substance: DUPILUMAB
     Indication: Dermatitis atopic
     Dosage: 300 MG, QOW
     Route: 058
     Dates: start: 20221110
  2. ALBUTEROL SULFATE [Concomitant]
     Active Substance: ALBUTEROL SULFATE
  3. AMLODIPINE [Concomitant]
     Active Substance: AMLODIPINE BESYLATE
  4. ATORVASTATIN [Concomitant]
     Active Substance: ATORVASTATIN
  5. BACLOFEN [Concomitant]
     Active Substance: BACLOFEN
  6. GABAPENTIN [Concomitant]
     Active Substance: GABAPENTIN
  7. IBUPROFEN [Concomitant]
     Active Substance: IBUPROFEN
  8. ALBUTEROL\IPRATROPIUM [Concomitant]
     Active Substance: ALBUTEROL\IPRATROPIUM
  9. METFORMIN [Concomitant]
     Active Substance: METFORMIN HYDROCHLORIDE
  10. MELOXICAM [Concomitant]
     Active Substance: MELOXICAM
  11. METFORMIN [Concomitant]
     Active Substance: METFORMIN HYDROCHLORIDE
  12. PREDNISONE [Concomitant]
     Active Substance: PREDNISONE
  13. TACROLIMUS [Concomitant]
     Active Substance: TACROLIMUS
  14. TAMSULOSIN [Concomitant]
     Active Substance: TAMSULOSIN
  15. TRELEGY ELLIPTA [Concomitant]
     Active Substance: FLUTICASONE FUROATE\UMECLIDINIUM BROMIDE\VILANTEROL TRIFENATATE
  16. BACLOFEN [Concomitant]
     Active Substance: BACLOFEN
  17. MECLIZINE HYDROCHLORIDE [Concomitant]
     Active Substance: MECLIZINE HYDROCHLORIDE
  18. TRIAMCINOLONE [Concomitant]
     Active Substance: TRIAMCINOLONE
  19. TRIAMCINOLONE [Concomitant]
     Active Substance: TRIAMCINOLONE

REACTIONS (5)
  - Dermatitis atopic [Recovered/Resolved]
  - Rash [Recovered/Resolved]
  - Discomfort [Recovered/Resolved]
  - Drug ineffective [Unknown]
  - Product dose omission in error [Unknown]
